FAERS Safety Report 25723547 (Version 1)
Quarter: 2025Q3

REPORT INFORMATION
  Report Type: Spontaneous
  Country: US (occurrence: US)
  Receive Date: 20250825
  Receipt Date: 20250825
  Transmission Date: 20251020
  Serious: No
  Sender: ANI
  Company Number: US-ANIPHARMA-2025-US-009539

PATIENT
  Sex: Female

DRUGS (1)
  1. CORTICOTROPIN [Suspect]
     Active Substance: CORTICOTROPIN
     Indication: Rheumatoid arthritis
     Route: 058
     Dates: start: 202409

REACTIONS (7)
  - Glycosylated haemoglobin increased [Unknown]
  - Blood pressure increased [Unknown]
  - Cough [Unknown]
  - Aphonia [Unknown]
  - Pyrexia [Unknown]
  - Diarrhoea [Unknown]
  - Viral infection [Unknown]
